FAERS Safety Report 5903460-X (Version None)
Quarter: 2008Q3

REPORT INFORMATION
  Report Type: 
  Country: None (occurrence: None)
  Receive Date: 20080930
  Receipt Date: 20080924
  Transmission Date: 20090109
  Serious: Yes (Hospitalization)
  Sender: FDA-Public Use
  Company Number: GR-ABBOTT-08P-066-0476057-00

PATIENT
  Age: 72 Year
  Sex: Female
  Weight: 72.5 kg

DRUGS (10)
  1. ZEMPLAR [Suspect]
     Indication: HYPERPARATHYROIDISM SECONDARY
     Route: 042
     Dates: start: 20071108, end: 20080401
  2. EPOETIN BETA [Concomitant]
     Indication: DRUG USE FOR UNKNOWN INDICATION
     Dosage: 3000
  3. NEUROGRISEVIT [Concomitant]
     Indication: DRUG USE FOR UNKNOWN INDICATION
  4. TETRACYCLINE HYDROCHLORIDE [Concomitant]
     Indication: DRUG USE FOR UNKNOWN INDICATION
  5. FUROSEMIDE [Concomitant]
     Indication: DRUG USE FOR UNKNOWN INDICATION
     Dosage: 1/2 X 1 (500)
  6. RANITIDINE [Concomitant]
     Indication: DRUG USE FOR UNKNOWN INDICATION
  7. CALCIUM CARBONATE [Concomitant]
     Indication: DRUG USE FOR UNKNOWN INDICATION
  8. FERROUS GLUCONATE [Concomitant]
     Indication: DRUG USE FOR UNKNOWN INDICATION
  9. ISOPHANE INSULIN [Concomitant]
     Indication: DRUG USE FOR UNKNOWN INDICATION
  10. CLOPIDOGREL [Concomitant]
     Indication: DRUG USE FOR UNKNOWN INDICATION

REACTIONS (1)
  - ANGINA PECTORIS [None]
